FAERS Safety Report 7231022-3 (Version None)
Quarter: 2011Q1

REPORT INFORMATION
  Report Type: 
  Country: None (occurrence: None)
  Receive Date: 20110118
  Receipt Date: 20110111
  Transmission Date: 20110831
  Serious: Yes (Hospitalization)
  Sender: FDA-Public Use
  Company Number: JP-ROCHE-752800

PATIENT
  Sex: Male

DRUGS (1)
  1. TOCILIZUMAB [Suspect]
     Indication: JUVENILE ARTHRITIS
     Route: 041

REACTIONS (2)
  - HISTIOCYTOSIS HAEMATOPHAGIC [None]
  - TOXIC ENCEPHALOPATHY [None]
